FAERS Safety Report 6868439-2 (Version None)
Quarter: 2010Q3

REPORT INFORMATION
  Report Type: 
  Country: None (occurrence: None)
  Receive Date: 20100722
  Receipt Date: 20080528
  Transmission Date: 20110219
  Serious: No
  Sender: FDA-Public Use
  Company Number: US-PFIZER INC-2008046068

PATIENT
  Sex: Male
  Weight: 86.18 kg

DRUGS (4)
  1. CHANTIX [Suspect]
     Indication: SMOKING CESSATION THERAPY
     Dates: start: 20080507
  2. FOLIC ACID [Concomitant]
  3. VITAMIN B1 TAB [Concomitant]
  4. MEGESTROL ACETATE [Concomitant]

REACTIONS (1)
  - POOR QUALITY SLEEP [None]
